FAERS Safety Report 9031940 (Version 3)
Quarter: 2013Q1

REPORT INFORMATION
  Report Type: Spontaneous
  Country: JP (occurrence: JP)
  Receive Date: 20130125
  Receipt Date: 20130227
  Transmission Date: 20140127
  Serious: Yes (Other)
  Sender: FDA-Public Use
  Company Number: JP-PFIZER INC-2013028514

PATIENT
  Age: 32 Year
  Sex: Female

DRUGS (1)
  1. PREMARIN [Suspect]
     Indication: HORMONE REPLACEMENT THERAPY
     Dosage: 1 DF, 2X/DAY
     Route: 048
     Dates: start: 20130110

REACTIONS (2)
  - Thyroid disorder [Unknown]
  - Thyroid function test abnormal [Unknown]
